FAERS Safety Report 4358100-0 (Version None)
Quarter: 2004Q2

REPORT INFORMATION
  Report Type: 
  Country: None (occurrence: None)
  Receive Date: 20040511
  Receipt Date: 20040427
  Transmission Date: 20050107
  Serious: Yes (Disabling)
  Sender: FDA-Public Use
  Company Number: 2004AP01378

PATIENT
  Age: 78 Year
  Sex: Male

DRUGS (12)
  1. IRESSA [Suspect]
     Indication: NON-SMALL CELL LUNG CANCER
     Dosage: 250 MG DAILY PO
     Route: 048
     Dates: start: 20030724, end: 20030820
  2. IRESSA [Suspect]
     Indication: SQUAMOUS CELL CARCINOMA
     Dosage: 250 MG DAILY PO
     Route: 048
     Dates: start: 20030724, end: 20030820
  3. FRANDOL [Concomitant]
  4. ADALAT [Concomitant]
  5. HI-Z [Concomitant]
  6. COLDRIN [Concomitant]
  7. NAIXAN [Concomitant]
  8. DOGMATYL [Concomitant]
  9. CARBOPLATIN [Concomitant]
  10. VINORELBINE TARTRATE [Concomitant]
  11. VINDESINE SULFATE [Concomitant]
  12. VINDESIN [Concomitant]

REACTIONS (4)
  - BLOOD UREA INCREASED [None]
  - DEHYDRATION [None]
  - METASTASES TO SPINE [None]
  - PARALYSIS [None]
